FAERS Safety Report 7185361-5 (Version None)
Quarter: 2010Q4

REPORT INFORMATION
  Report Type: 
  Country: None (occurrence: None)
  Receive Date: 20101222
  Receipt Date: 20101217
  Transmission Date: 20110411
  Serious: Yes (Hospitalization, Other)
  Sender: FDA-Public Use
  Company Number: DE-PFIZER INC-2010139948

PATIENT
  Age: 61 Year
  Sex: Male

DRUGS (6)
  1. TREVILOR RETARD [Suspect]
     Indication: DEPRESSION
     Dosage: 112.5 MG DAILY
     Route: 048
     Dates: start: 20100803, end: 20100903
  2. TREVILOR RETARD [Suspect]
     Dosage: 150 MG DAILY
     Route: 048
     Dates: start: 20100904
  3. MIRTAZAPINE [Suspect]
     Indication: DEPRESSION
     Dosage: 30 MG DAILY
     Route: 048
     Dates: start: 20100803, end: 20100808
  4. MIRTAZAPINE [Suspect]
     Dosage: 15 MG DAILY
     Route: 048
     Dates: start: 20100809, end: 20100907
  5. QUILONUM - SLOW RELEASE [Suspect]
     Indication: DEPRESSION
     Dosage: 450 MG DAILY
     Route: 048
     Dates: start: 20100813, end: 20100815
  6. QUILONUM - SLOW RELEASE [Suspect]
     Dosage: 900 MG DAILY
     Route: 048
     Dates: start: 20100816

REACTIONS (4)
  - GAMMA-GLUTAMYLTRANSFERASE INCREASED [None]
  - INSOMNIA [None]
  - RESTLESS LEGS SYNDROME [None]
  - WITHDRAWAL SYNDROME [None]
